FAERS Safety Report 25468022 (Version 2)
Quarter: 2025Q3

REPORT INFORMATION
  Report Type: Spontaneous
  Country: US (occurrence: US)
  Receive Date: 20250623
  Receipt Date: 20250811
  Transmission Date: 20251021
  Serious: Yes (Hospitalization)
  Sender: PFIZER
  Company Number: US-PFIZER INC-202500125402

PATIENT
  Age: 4 Year
  Sex: Male
  Weight: 15.35 kg

DRUGS (1)
  1. SOMATROPIN [Suspect]
     Active Substance: SOMATROPIN
     Indication: Small for dates baby
     Dosage: 0.6 MG/DAY 7 DAYS/WEEK DAYS/ INJECT 0.6 MG SUBCUTANEOUS UNDER THE SKIN 7 TIMES PER WEEK
     Route: 058

REACTIONS (1)
  - Thyroid disorder [Unknown]
